FAERS Safety Report 17419497 (Version 3)
Quarter: 2020Q1

REPORT INFORMATION
  Report Type: Spontaneous
  Country: US (occurrence: US)
  Receive Date: 20200214
  Receipt Date: 20200310
  Transmission Date: 20200409
  Serious: Yes (Death, Hospitalization, Other)
  Sender: FDA-Public Use
  Company Number: US-009507513-2002USA005561

PATIENT
  Sex: Female
  Weight: 62.86 kg

DRUGS (8)
  1. JANUVIA [Suspect]
     Active Substance: SITAGLIPTIN PHOSPHATE
     Indication: DIABETES MELLITUS
     Dosage: 100 MILLIGRAM, QD
     Route: 048
     Dates: start: 20170927, end: 201712
  2. MORPHINE [Concomitant]
     Active Substance: MORPHINE
     Indication: PAIN
     Dosage: UNK
     Dates: start: 20170102, end: 20180106
  3. DULOXETINE HYDROCHLORIDE. [Concomitant]
     Active Substance: DULOXETINE HYDROCHLORIDE
     Indication: NEURALGIA
     Dosage: UNK
     Dates: start: 20170125, end: 20180106
  4. FLUOXETINE [Concomitant]
     Active Substance: FLUOXETINE HYDROCHLORIDE
     Indication: DEPRESSION
     Dosage: UNK
     Dates: start: 20161130, end: 20180106
  5. GLIMEPIRIDE. [Suspect]
     Active Substance: GLIMEPIRIDE
     Indication: DIABETES MELLITUS
     Dosage: UNK
  6. METFORMIN [Suspect]
     Active Substance: METFORMIN HYDROCHLORIDE
     Indication: DIABETES MELLITUS
     Dosage: UNK
     Dates: end: 201712
  7. FLUTICASONE. [Concomitant]
     Active Substance: FLUTICASONE
     Indication: NASAL DISORDER
     Dosage: UNK
     Dates: start: 20150615, end: 20180106
  8. GABAPENTIN. [Concomitant]
     Active Substance: GABAPENTIN
     Indication: NEURALGIA
     Dosage: UNK
     Dates: start: 20141218, end: 20180106

REACTIONS (36)
  - Septic shock [Unknown]
  - Neutropenia [Unknown]
  - Renal cyst [Unknown]
  - Tinnitus [Unknown]
  - Faeces discoloured [Unknown]
  - Blood creatinine decreased [Unknown]
  - Anaemia [Unknown]
  - Pancreatic carcinoma [Fatal]
  - Hypokalaemia [Recovered/Resolved]
  - Intestinal ischaemia [Not Recovered/Not Resolved]
  - Hypotension [Recovered/Resolved]
  - Aortic arteriosclerosis [Unknown]
  - Hypokalaemia [Unknown]
  - Fluid overload [Unknown]
  - Leukocytosis [Recovered/Resolved]
  - Constipation [Unknown]
  - Biliary sepsis [Not Recovered/Not Resolved]
  - Malnutrition [Unknown]
  - International normalised ratio increased [Unknown]
  - Blood calcium decreased [Unknown]
  - Palpitations [Unknown]
  - Degenerative bone disease [Unknown]
  - Metastases to liver [Fatal]
  - Blood urea decreased [Unknown]
  - Deep vein thrombosis [Unknown]
  - Immunosuppression [Unknown]
  - Hypoglycaemia [Recovered/Resolved]
  - Dyspnoea [Unknown]
  - Oedema peripheral [Recovering/Resolving]
  - Pancreatic carcinoma metastatic [Fatal]
  - Incarcerated umbilical hernia [Not Recovered/Not Resolved]
  - Lactic acidosis [Unknown]
  - Pulmonary granuloma [Unknown]
  - Platelet count increased [Unknown]
  - Bladder prolapse [Unknown]
  - Anxiety [Unknown]

NARRATIVE: CASE EVENT DATE: 2017
